FAERS Safety Report 18540458 (Version 1)
Quarter: 2020Q4

REPORT INFORMATION
  Report Type: Spontaneous
  Country: US (occurrence: US)
  Receive Date: 20201124
  Receipt Date: 20201124
  Transmission Date: 20210114
  Serious: No
  Sender: FDA-Public Use
  Company Number: US-PFIZER INC-2020459676

PATIENT
  Age: 73 Year
  Sex: Female

DRUGS (1)
  1. IBRANCE [Suspect]
     Active Substance: PALBOCICLIB
     Indication: BREAST CANCER FEMALE
     Dosage: 100 MG, CYCLIC (QD (ONCE A DAY)X 28)
     Dates: start: 20190507

REACTIONS (4)
  - Dyspnoea [Unknown]
  - Product dose omission issue [Unknown]
  - Rash [Unknown]
  - Diarrhoea [Unknown]
